FAERS Safety Report 11612374 (Version 1)
Quarter: 2015Q4

REPORT INFORMATION
  Report Type: Spontaneous
  Country: FR (occurrence: FR)
  Receive Date: 20151008
  Receipt Date: 20151008
  Transmission Date: 20160304
  Serious: Yes (Life-Threatening, Hospitalization)
  Sender: FDA-Public Use
  Company Number: FR-ASTRAZENECA-2015SE95301

PATIENT
  Age: 29 Year
  Sex: Female

DRUGS (4)
  1. ZOMIG [Suspect]
     Active Substance: ZOLMITRIPTAN
  2. MOTILIUM [Suspect]
     Active Substance: DOMPERIDONE
     Dates: start: 20020509, end: 20020509
  3. TOPALGIC [Suspect]
     Active Substance: TRAMADOL
     Route: 048
     Dates: start: 20020509, end: 20020509
  4. ZOMIG [Suspect]
     Active Substance: ZOLMITRIPTAN
     Dates: start: 20020509, end: 20020509

REACTIONS (2)
  - Suicide attempt [Unknown]
  - Hepatocellular injury [Unknown]

NARRATIVE: CASE EVENT DATE: 20020509
